FAERS Safety Report 6448630-X (Version None)
Quarter: 2009Q4

REPORT INFORMATION
  Report Type: 
  Country: None (occurrence: None)
  Receive Date: 20091120
  Receipt Date: 20091109
  Transmission Date: 20100525
  Serious: Yes (Hospitalization)
  Sender: FDA-Public Use
  Company Number: GB-ELI_LILLY_AND_COMPANY-GB200909006600

PATIENT
  Sex: Male

DRUGS (13)
  1. HUMALOG [Suspect]
     Dosage: UNK, UNKNOWN
     Route: 058
     Dates: start: 20090918, end: 20090926
  2. HUMALOG [Suspect]
     Dosage: UNK, UNKNOWN
     Dates: start: 20090901
  3. DOXAZOSIN [Concomitant]
     Dosage: 1 MG, DAILY (1/D)
     Route: 065
  4. VALSARTAN [Concomitant]
     Dosage: 160 MG, DAILY (1/D)
  5. ATORVASTATIN [Concomitant]
     Dosage: 20 MG, DAILY (1/D)
  6. BENDROFLUMETHIAZIDE [Concomitant]
     Dosage: 2.5 MG, EACH MORNING
  7. AMLODIPINE [Concomitant]
     Dosage: 5 MG, DAILY (1/D)
  8. METFORMIN [Concomitant]
     Dosage: 500 MG, 3/D
  9. CARBOCISTEINE [Concomitant]
     Dosage: 375 MG ( TIMES 2 ), 3/D
  10. LANTUS OPTISET [Concomitant]
  11. ASPIRIN [Concomitant]
     Dosage: 75 MG, DAILY (1/D)
  12. MOMETASONE FUROATE [Concomitant]
     Dosage: 2 SPRAYS, DAILY (1/D)
  13. FEXOFENADINE [Concomitant]
     Dosage: 120 MG, DAILY (1/D)

REACTIONS (3)
  - BLOOD GLUCOSE INCREASED [None]
  - DIABETES MELLITUS INADEQUATE CONTROL [None]
  - DRUG INEFFECTIVE [None]
